FAERS Safety Report 6262137-4 (Version None)
Quarter: 2009Q3

REPORT INFORMATION
  Report Type: 
  Country: None (occurrence: None)
  Receive Date: 20090702
  Receipt Date: 20090526
  Transmission Date: 20100115
  Serious: No
  Sender: FDA-Public Use
  Company Number: 1000006461

PATIENT
  Age: 63 Year
  Sex: Female

DRUGS (3)
  1. BYSTOLIC [Suspect]
     Indication: HYPERTENSION
     Dosage: 10 MG (10 MG, 1 IN 1 D), ORAL
     Route: 048
     Dates: start: 20090301, end: 20090501
  2. SYNTHROID [Concomitant]
  3. VYTORIN [Concomitant]

REACTIONS (3)
  - DRY MOUTH [None]
  - HYPOAESTHESIA ORAL [None]
  - ORAL MUCOSAL ERUPTION [None]
